FAERS Safety Report 18535085 (Version 1)
Quarter: 2020Q4

REPORT INFORMATION
  Report Type: Spontaneous
  Country: US (occurrence: US)
  Receive Date: 20201123
  Receipt Date: 20201123
  Transmission Date: 20210114
  Serious: Yes (Disabling, Other)
  Sender: FDA-Public Use
  Company Number: US-PURDUE-USA-2020-0175516

PATIENT
  Sex: Female

DRUGS (1)
  1. HYDROMORPHONE TABLETS [Suspect]
     Active Substance: HYDROMORPHONE
     Indication: PRODUCT USED FOR UNKNOWN INDICATION
     Dosage: UNK
     Route: 064

REACTIONS (13)
  - Depression [Unknown]
  - Drug dependence [Unknown]
  - Fear [Unknown]
  - Suicidal ideation [Unknown]
  - Migraine [Unknown]
  - Nausea [Unknown]
  - Developmental delay [Unknown]
  - Anxiety [Unknown]
  - Injury [Unknown]
  - Post-traumatic stress disorder [Unknown]
  - Cyclic vomiting syndrome [Unknown]
  - Drug withdrawal syndrome neonatal [Unknown]
  - Separation anxiety disorder [Unknown]
